FAERS Safety Report 18339568 (Version 1)
Quarter: 2020Q4

REPORT INFORMATION
  Report Type: Spontaneous
  Country: US (occurrence: US)
  Receive Date: 20201002
  Receipt Date: 20201002
  Transmission Date: 20210113
  Serious: Yes (Other)
  Sender: FDA-Public Use
  Company Number: US-BAYER-2020-211920

PATIENT
  Sex: Female

DRUGS (14)
  1. RITUXAN [Concomitant]
     Active Substance: RITUXIMAB
  2. GILENYA [Concomitant]
     Active Substance: FINGOLIMOD HYDROCHLORIDE
  3. SINGULAIR [Concomitant]
     Active Substance: MONTELUKAST SODIUM
  4. DEXAMETHASONE. [Concomitant]
     Active Substance: DEXAMETHASONE
  5. SYNTHROID [Concomitant]
     Active Substance: LEVOTHYROXINE SODIUM
  6. ASPIRIN (PAIN AND FEVER) [Concomitant]
     Active Substance: ASPIRIN
  7. COPAXONE [Concomitant]
     Active Substance: GLATIRAMER ACETATE
  8. AUBAGIO [Concomitant]
     Active Substance: TERIFLUNOMIDE
  9. CLONOPIN [Concomitant]
     Active Substance: CLONAZEPAM
  10. GABAPENTIN. [Concomitant]
     Active Substance: GABAPENTIN
  11. TECFIDERA [Concomitant]
     Active Substance: DIMETHYL FUMARATE
  12. BETASERON [Suspect]
     Active Substance: INTERFERON BETA-1B
     Indication: PRODUCT USED FOR UNKNOWN INDICATION
  13. CODEINE [Concomitant]
     Active Substance: CODEINE
  14. BACLOFEN. [Concomitant]
     Active Substance: BACLOFEN

REACTIONS (6)
  - Abdominal discomfort [Unknown]
  - Gastrointestinal disorder [Unknown]
  - Vomiting [Unknown]
  - Hypersomnia [Unknown]
  - Multiple sclerosis [Unknown]
  - Feeling abnormal [Unknown]
